FAERS Safety Report 13667400 (Version 2)
Quarter: 2017Q2

REPORT INFORMATION
  Report Type: Spontaneous
  Country: ZA (occurrence: ZA)
  Receive Date: 20170620
  Receipt Date: 20170630
  Transmission Date: 20170830
  Serious: Yes (Hospitalization)
  Sender: FDA-Public Use
  Company Number: ZA-B.I. PHARMACEUTICALS,INC./RIDGEFIELD-2017-BI-033351

PATIENT
  Sex: Male

DRUGS (2)
  1. CLOPIWIN [Concomitant]
     Active Substance: CLOPIDOGREL BISULFATE
     Indication: PERIPHERAL VASCULAR DISORDER
     Route: 065
  2. PRADAXA [Suspect]
     Active Substance: DABIGATRAN ETEXILATE MESYLATE
     Indication: ATRIAL FIBRILLATION
     Route: 048

REACTIONS (3)
  - Haemorrhagic transformation stroke [Unknown]
  - Cerebrovascular accident [Not Recovered/Not Resolved]
  - Atrial thrombosis [Not Recovered/Not Resolved]
